FAERS Safety Report 17685984 (Version 3)
Quarter: 2020Q2

REPORT INFORMATION
  Report Type: Spontaneous
  Country: US (occurrence: US)
  Receive Date: 20200420
  Receipt Date: 20200529
  Transmission Date: 20200714
  Serious: No
  Sender: FDA-Public Use
  Company Number: US-ASTRAZENECA-2020SE51980

PATIENT
  Sex: Male
  Weight: 122.5 kg

DRUGS (5)
  1. IBUPROFEN. [Concomitant]
     Active Substance: IBUPROFEN
     Dosage: 80.0MG AS REQUIRED
  2. PREDNISONE. [Concomitant]
     Active Substance: PREDNISONE
  3. STEROID [Concomitant]
     Active Substance: UNSPECIFIED INGREDIENT
  4. TRULICITY [Concomitant]
     Active Substance: DULAGLUTIDE
  5. BYDUREON BCISE [Suspect]
     Active Substance: EXENATIDE
     Indication: TYPE 2 DIABETES MELLITUS
     Route: 058
     Dates: start: 20190801

REACTIONS (9)
  - Paraesthesia [Recovering/Resolving]
  - Swelling [Unknown]
  - Wrong technique in device usage process [Unknown]
  - Hypoaesthesia [Recovering/Resolving]
  - Neuralgia [Unknown]
  - Back pain [Unknown]
  - Device issue [Unknown]
  - Intercepted product administration error [Unknown]
  - Pain in extremity [Unknown]
